FAERS Safety Report 13664481 (Version 1)
Quarter: 2017Q2

REPORT INFORMATION
  Report Type: Report from Study
  Country: US (occurrence: US)
  Receive Date: 20170619
  Receipt Date: 20170619
  Transmission Date: 20170830
  Serious: Yes (Death)
  Sender: FDA-Public Use
  Company Number: US-PFIZER INC-2017263210

PATIENT

DRUGS (4)
  1. PLACEBO [Concomitant]
     Active Substance: UNSPECIFIED INGREDIENT
     Indication: SMALL CELL LUNG CANCER
     Dosage: 60-MINUTE INTRAVENOUS INFUSIONS ON DAY 2 OF CYCLE 1 AND ON DAY 1 OF ALL SUBSEQUEN CYCLES
     Route: 042
  2. ETOPOSIDE. [Suspect]
     Active Substance: ETOPOSIDE
     Indication: SMALL CELL LUNG CANCER
     Dosage: 100 MG/M2, CYCLIC (ON DAY 1 OF EACH 21-DAY CYCLE)
     Route: 042
  3. ETOPOSIDE. [Suspect]
     Active Substance: ETOPOSIDE
     Dosage: 100 MG/M2, CYCLIC (ON DAYS 2 AND 3 OF EACH 21-DAY CYCLE)
     Route: 042
  4. CARBOPLATIN. [Suspect]
     Active Substance: CARBOPLATIN
     Indication: SMALL CELL LUNG CANCER
     Dosage: AUC, 5 MG/ML XMIN OVER 30 MINUTES (?10 MINUTES)
     Route: 042

REACTIONS (1)
  - Gastric ulcer haemorrhage [Fatal]
